FAERS Safety Report 11280398 (Version 2)
Quarter: 2015Q3

REPORT INFORMATION
  Report Type: Spontaneous
  Country: US (occurrence: US)
  Receive Date: 20150717
  Receipt Date: 20150819
  Transmission Date: 20151125
  Serious: No
  Sender: FDA-Public Use
  Company Number: US-JNJFOC-20150704913

PATIENT
  Sex: Female
  Weight: 50.8 kg

DRUGS (17)
  1. COUMADIN [Concomitant]
     Active Substance: WARFARIN SODIUM
     Indication: PULMONARY EMBOLISM
     Route: 048
     Dates: start: 2010, end: 2010
  2. MAGNESIUM [Concomitant]
     Active Substance: MAGNESIUM
     Dosage: MID DAY
     Route: 065
  3. CALCIUM/D3 [Concomitant]
     Active Substance: CALCIUM\CHOLECALCIFEROL
     Indication: OSTEOPOROSIS
     Dosage: CALCIUM 600 MG EACH + 500 IU EACH FOR A TOTAL??CALCIUM 1200 AND 1000 I.U OF D3 MID-DAY
     Route: 065
  4. FLUOCINONIDE. [Concomitant]
     Active Substance: FLUOCINONIDE
     Dosage: USED SPARINGLY ON SCLAP
     Route: 061
  5. XARELTO [Suspect]
     Active Substance: RIVAROXABAN
     Indication: ATRIAL THROMBOSIS
     Route: 048
     Dates: start: 20141010
  6. XARELTO [Suspect]
     Active Substance: RIVAROXABAN
     Indication: HYPERTENSION
     Route: 048
     Dates: start: 20141010
  7. SYNTHROID [Concomitant]
     Active Substance: LEVOTHYROXINE SODIUM
     Indication: HYPOTHYROIDISM
     Dosage: ONCE A DAY WITH BREAKFAST
     Route: 048
     Dates: start: 1976
  8. LOVENOX [Concomitant]
     Active Substance: ENOXAPARIN SODIUM
     Indication: PULMONARY EMBOLISM
     Route: 050
     Dates: start: 201005, end: 2010
  9. LOVENOX [Concomitant]
     Active Substance: ENOXAPARIN SODIUM
     Indication: DEEP VEIN THROMBOSIS
     Route: 050
     Dates: start: 201005, end: 2010
  10. ASPIRIN. [Concomitant]
     Active Substance: ASPIRIN
     Indication: DEEP VEIN THROMBOSIS
     Route: 048
     Dates: start: 201012, end: 201409
  11. TELMISARTAN. [Concomitant]
     Active Substance: TELMISARTAN
     Indication: HYPERTENSION
     Route: 065
     Dates: start: 20141010, end: 20150422
  12. BIOTIN [Concomitant]
     Active Substance: BIOTIN
     Dosage: MID DAY
     Route: 065
  13. WARFARIN [Concomitant]
     Active Substance: WARFARIN
     Indication: DEEP VEIN THROMBOSIS
     Route: 048
     Dates: start: 2010, end: 2010
  14. ASPIRIN. [Concomitant]
     Active Substance: ASPIRIN
     Indication: PULMONARY EMBOLISM
     Route: 048
     Dates: start: 201012, end: 201409
  15. COUMADIN [Concomitant]
     Active Substance: WARFARIN SODIUM
     Indication: DEEP VEIN THROMBOSIS
     Route: 048
     Dates: start: 2010, end: 2010
  16. WARFARIN [Concomitant]
     Active Substance: WARFARIN
     Indication: PULMONARY EMBOLISM
     Route: 048
     Dates: start: 2010, end: 2010
  17. ASPIRIN. [Concomitant]
     Active Substance: ASPIRIN
     Indication: ANTICOAGULANT THERAPY
     Route: 048
     Dates: start: 201012, end: 201409

REACTIONS (7)
  - Alopecia [Not Recovered/Not Resolved]
  - Rash erythematous [Not Recovered/Not Resolved]
  - Dysgeusia [Not Recovered/Not Resolved]
  - Urinary tract disorder [Not Recovered/Not Resolved]
  - Swollen tongue [Not Recovered/Not Resolved]
  - Dry mouth [Not Recovered/Not Resolved]
  - Dental care [Recovered/Resolved]

NARRATIVE: CASE EVENT DATE: 2014
